FAERS Safety Report 7383930-0 (Version None)
Quarter: 2011Q1

REPORT INFORMATION
  Report Type: 
  Country: None (occurrence: None)
  Receive Date: 20110330
  Receipt Date: 20110328
  Transmission Date: 20110831
  Serious: Yes (Hospitalization)
  Sender: FDA-Public Use
  Company Number: TW-ABBOTT-11P-153-0710253-00

PATIENT
  Sex: Female

DRUGS (9)
  1. ACETYLCYSTEINE [Concomitant]
     Indication: PRODUCT USED FOR UNKNOWN INDICATION
     Dosage: 100MG/5GM 1 BID
  2. PROPRANOLOL [Concomitant]
     Indication: PRODUCT USED FOR UNKNOWN INDICATION
     Dosage: 0.5 TID
  3. MOSAPRIDE [Concomitant]
     Indication: PRODUCT USED FOR UNKNOWN INDICATION
  4. MEDICON A [Concomitant]
     Indication: PRODUCT USED FOR UNKNOWN INDICATION
  5. PYRIDOXINE [Concomitant]
     Indication: PRODUCT USED FOR UNKNOWN INDICATION
  6. HUMIRA [Suspect]
     Indication: RHEUMATOID ARTHRITIS
     Dates: start: 20100609, end: 20110130
  7. R120+I80+PZA 250 [Concomitant]
     Indication: PRODUCT USED FOR UNKNOWN INDICATION
     Dosage: 5 QD
  8. FAMOTIDINE [Concomitant]
     Indication: PRODUCT USED FOR UNKNOWN INDICATION
  9. ETHAMBUTOL HYDROCHLORIDE [Concomitant]
     Indication: PRODUCT USED FOR UNKNOWN INDICATION
     Dosage: 2 QD

REACTIONS (9)
  - PYREXIA [None]
  - OEDEMA PERIPHERAL [None]
  - CARDIOMEGALY [None]
  - JOINT SWELLING [None]
  - PERICARDIAL EFFUSION [None]
  - PLEURAL EFFUSION [None]
  - DYSPNOEA EXERTIONAL [None]
  - COUGH [None]
  - TUBERCULOSIS [None]
